FAERS Safety Report 6681921-6 (Version None)
Quarter: 2010Q2

REPORT INFORMATION
  Report Type: 
  Country: None (occurrence: None)
  Receive Date: 20100409
  Receipt Date: 20100401
  Transmission Date: 20101027
  Serious: Yes (Hospitalization)
  Sender: FDA-Public Use
  Company Number: THQ2010A00859

PATIENT
  Age: 76 Year
  Sex: Female

DRUGS (2)
  1. LANSOPRAZOLE [Suspect]
  2. AMOXICILLIN TRIHYDRATE [Suspect]

REACTIONS (5)
  - DERMATITIS [None]
  - DRUG RASH WITH EOSINOPHILIA AND SYSTEMIC SYMPTOMS [None]
  - HEPATITIS [None]
  - RENAL FAILURE [None]
  - SKIN TEST POSITIVE [None]
